FAERS Safety Report 15891479 (Version 1)
Quarter: 2019Q1

REPORT INFORMATION
  Report Type: Spontaneous
  Country: US (occurrence: US)
  Receive Date: 20190130
  Receipt Date: 20190130
  Transmission Date: 20190417
  Serious: No
  Sender: FDA-Public Use
  Company Number: US-ALLERGAN-1902135US

PATIENT

DRUGS (1)
  1. VIIBRYD [Suspect]
     Active Substance: VILAZODONE HYDROCHLORIDE
     Indication: PRODUCT USED FOR UNKNOWN INDICATION
     Dosage: UNK, UNKNOWN
     Route: 065

REACTIONS (9)
  - Feeling abnormal [Unknown]
  - Rash [Unknown]
  - Product dose omission [Unknown]
  - Pruritus generalised [Unknown]
  - Disturbance in attention [Unknown]
  - Dependence [Unknown]
  - Fatigue [Unknown]
  - Negative thoughts [Unknown]
  - Crying [Unknown]
